FAERS Safety Report 5799084-8 (Version None)
Quarter: 2008Q3

REPORT INFORMATION
  Report Type: 
  Country: None (occurrence: None)
  Receive Date: 20080702
  Receipt Date: 20080623
  Transmission Date: 20090109
  Serious: Yes (Hospitalization)
  Sender: FDA-Public Use
  Company Number: CA-BOEHRINGER INGELHEIM GMBH, GERMANY-2008-CN-00283CN

PATIENT
  Age: 78 Year
  Sex: Female

DRUGS (6)
  1. MICARDIS HCT [Suspect]
     Indication: HYPERTENSION
     Dosage: 1 A DAY
     Dates: start: 20030101
  2. ATENOLOL [Concomitant]
     Indication: HYPERTENSION
     Dosage: 1 A DAY
  3. LIPITOR [Concomitant]
     Indication: BLOOD CHOLESTEROL
  4. TIAZAC [Concomitant]
     Indication: HYPERTENSION
     Dosage: 1 A DAY
  5. OXYCONTIN [Concomitant]
     Indication: PAIN
  6. DILAUDID [Concomitant]
     Indication: PAIN

REACTIONS (6)
  - ABNORMAL FAECES [None]
  - DEHYDRATION [None]
  - DEPRESSION [None]
  - DIARRHOEA [None]
  - MALAISE [None]
  - NAUSEA [None]
